FAERS Safety Report 7452406-4 (Version None)
Quarter: 2011Q2

REPORT INFORMATION
  Report Type: 
  Country: None (occurrence: None)
  Receive Date: 20110502
  Receipt Date: 20100921
  Transmission Date: 20111010
  Serious: No
  Sender: FDA-Public Use
  Company Number: US-ASTRAZENECA-2010SE44501

PATIENT
  Sex: Female
  Weight: 84.8 kg

DRUGS (5)
  1. CLONAZEPAM [Concomitant]
  2. PRILOSEC [Suspect]
     Indication: GASTROOESOPHAGEAL REFLUX DISEASE
     Route: 048
  3. NEXIUM [Suspect]
     Indication: GASTROOESOPHAGEAL REFLUX DISEASE
     Route: 048
     Dates: start: 20100901, end: 20100901
  4. TRIAMTERENE AND HYDROCHLOROTHIAZIDE [Concomitant]
  5. KLOR-CON [Concomitant]

REACTIONS (6)
  - THROAT TIGHTNESS [None]
  - MEDICAL DEVICE COMPLICATION [None]
  - MALAISE [None]
  - ABDOMINAL PAIN UPPER [None]
  - VOMITING [None]
  - DRY MOUTH [None]
